FAERS Safety Report 16317247 (Version 3)
Quarter: 2019Q4

REPORT INFORMATION
  Report Type: Report from Study
  Country: US (occurrence: US)
  Receive Date: 20190515
  Receipt Date: 20191021
  Transmission Date: 20200122
  Serious: No
  Sender: FDA-Public Use
  Company Number: US-SA-2019SA132266

PATIENT
  Age: 87 Year
  Sex: Female

DRUGS (2)
  1. ALIROCUMAB [Suspect]
     Active Substance: ALIROCUMAB
     Indication: TYPE V HYPERLIPIDAEMIA
  2. ALIROCUMAB [Suspect]
     Active Substance: ALIROCUMAB
     Indication: BLOOD CHOLESTEROL INCREASED
     Dosage: 75MG/ML, QOW
     Route: 058
     Dates: start: 20190426

REACTIONS (2)
  - Incorrect dose administered [Unknown]
  - Device use issue [Unknown]

NARRATIVE: CASE EVENT DATE: 20190510
